FAERS Safety Report 7389116-8 (Version None)
Quarter: 2011Q2

REPORT INFORMATION
  Report Type: 
  Country: None (occurrence: None)
  Receive Date: 20110401
  Receipt Date: 20110323
  Transmission Date: 20111010
  Serious: Yes (Death)
  Sender: FDA-Public Use
  Company Number: JP-ROCHE-767590

PATIENT
  Age: 74 Year
  Sex: Female

DRUGS (1)
  1. TAMIFLU [Suspect]
     Indication: MENINGITIS BACTERIAL
     Route: 048
     Dates: start: 20100129, end: 20100212

REACTIONS (1)
  - DISSEMINATED INTRAVASCULAR COAGULATION [None]
